FAERS Safety Report 8080363-9 (Version None)
Quarter: 2012Q1

REPORT INFORMATION
  Report Type: 
  Country: None (occurrence: None)
  Receive Date: 20120130
  Receipt Date: 20120124
  Transmission Date: 20120608
  Serious: Yes (Other)
  Sender: FDA-Public Use
  Company Number: US-PFIZER INC-2012020316

PATIENT

DRUGS (1)
  1. PRISTIQ [Suspect]
     Indication: ANXIETY DISORDER
     Dosage: 50 MG

REACTIONS (1)
  - SUICIDAL IDEATION [None]
